FAERS Safety Report 15271413 (Version 1)
Quarter: 2018Q3

REPORT INFORMATION
  Report Type: Spontaneous
  Country: US (occurrence: US)
  Receive Date: 20180726
  Receipt Date: 20180726
  Transmission Date: 20181010
  Serious: Yes (Life-Threatening, Hospitalization)
  Sender: FDA-Public Use
  Company Number: None

PATIENT
  Age: 57 Year
  Sex: Male
  Weight: 59 kg

DRUGS (23)
  1. ALBUTEROL/IPRATROPIUM NEBULIZER [Concomitant]
     Active Substance: ALBUTEROL SULFATE\IPRATROPIUM BROMIDE
  2. LISINOPRIL. [Concomitant]
     Active Substance: LISINOPRIL
  3. AMOXICILLIN/CALVULANIC ACID [Concomitant]
  4. PREDNISONE. [Concomitant]
     Active Substance: PREDNISONE
  5. MHYCOPHENOLATE MOFETIL [Concomitant]
  6. ALUMINUM HYDROXIDE SUSPENSION [Concomitant]
  7. CARVEDILOL. [Concomitant]
     Active Substance: CARVEDILOL
  8. MIRALAX [Concomitant]
     Active Substance: POLYETHYLENE GLYCOL 3350
  9. LANSOPRAZOLE. [Suspect]
     Active Substance: LANSOPRAZOLE
     Indication: OESOPHAGITIS
     Route: 060
  10. OXYMORPHONE [Concomitant]
     Active Substance: OXYMORPHONE
  11. FLEXERIL [Concomitant]
     Active Substance: CYCLOBENZAPRINE HYDROCHLORIDE
  12. ATORVASTATIN [Concomitant]
     Active Substance: ATORVASTATIN
  13. ZOLPIDEM [Concomitant]
     Active Substance: ZOLPIDEM\ZOLPIDEM TARTRATE
  14. VITAMIN B1 SUPPLEMENT [Concomitant]
  15. MAG OXIDE [Concomitant]
     Active Substance: MAGNESIUM OXIDE
  16. ASPIRIN 81 MG [Concomitant]
     Active Substance: ASPIRIN
  17. ZETIA [Concomitant]
     Active Substance: EZETIMIBE
  18. HUMALOG [Concomitant]
     Active Substance: INSULIN LISPRO
  19. TACROLIMUS. [Concomitant]
     Active Substance: TACROLIMUS
  20. FERROUS SULFATE. [Concomitant]
     Active Substance: FERROUS SULFATE
  21. GABAPENTIN. [Concomitant]
     Active Substance: GABAPENTIN
  22. MORPHINE [Concomitant]
     Active Substance: MORPHINE
  23. VITAMIN D [Concomitant]
     Active Substance: CHOLECALCIFEROL

REACTIONS (6)
  - Dysphagia [None]
  - Drug ineffective [None]
  - Haematemesis [None]
  - Gastrointestinal haemorrhage [None]
  - Oesophagitis [None]
  - Hypotension [None]

NARRATIVE: CASE EVENT DATE: 20180614
